FAERS Safety Report 18338942 (Version 1)
Quarter: 2020Q4

REPORT INFORMATION
  Report Type: Spontaneous
  Country: US (occurrence: US)
  Receive Date: 20201002
  Receipt Date: 20201002
  Transmission Date: 20210113
  Serious: No
  Sender: FDA-Public Use
  Company Number: US-GLAXOSMITHKLINE-US2020191506

PATIENT
  Sex: Male

DRUGS (1)
  1. TRELEGY ELLIPTA [Suspect]
     Active Substance: FLUTICASONE FUROATE\UMECLIDINIUM BROMIDE\VILANTEROL TRIFENATATE
     Indication: COVID-19
     Dosage: 1 PUFF(S), 1D
     Route: 065
     Dates: start: 202008

REACTIONS (3)
  - Product use in unapproved indication [Unknown]
  - Product packaging confusion [Unknown]
  - Off label use [Unknown]

NARRATIVE: CASE EVENT DATE: 2020
